FAERS Safety Report 7905469-3 (Version None)
Quarter: 2011Q4

REPORT INFORMATION
  Report Type: 
  Country: None (occurrence: None)
  Receive Date: 20111110
  Receipt Date: 20111102
  Transmission Date: 20120403
  Serious: Yes (Hospitalization)
  Sender: FDA-Public Use
  Company Number: US-BIOGENIDEC-2008BI029631

PATIENT
  Age: 62 Year
  Sex: Female

DRUGS (3)
  1. AVONEX [Suspect]
     Route: 030
     Dates: start: 20110103
  2. AVONEX [Suspect]
     Indication: MULTIPLE SCLEROSIS
     Route: 030
     Dates: start: 20011114
  3. AVONEX [Suspect]
     Route: 030
     Dates: end: 20081105

REACTIONS (11)
  - FEELING COLD [None]
  - CATARACT [None]
  - DRUG INEFFECTIVE [None]
  - COUGH [None]
  - DYSPNOEA [None]
  - PNEUMONIA BACTERIAL [None]
  - INFLUENZA LIKE ILLNESS [None]
  - ACUTE SINUSITIS [None]
  - MUSCLE ATROPHY [None]
  - HYPERTENSION [None]
  - VOMITING [None]
